FAERS Safety Report 9053851 (Version 1)
Quarter: 2013Q1

REPORT INFORMATION
  Report Type: Spontaneous
  Country: SG (occurrence: SG)
  Receive Date: 20130207
  Receipt Date: 20130207
  Transmission Date: 20140127
  Serious: Yes (Other)
  Sender: FDA-Public Use
  Company Number: SG-VIIV HEALTHCARE LIMITED-B0865754A

PATIENT
  Age: 39 Year
  Sex: Male

DRUGS (3)
  1. LAMIVUDINE-HIV [Suspect]
     Indication: HIV INFECTION
     Route: 065
  2. ZIDOVUDINE [Suspect]
     Indication: HIV INFECTION
     Route: 065
  3. EFAVIRENZ [Suspect]
     Indication: HIV INFECTION
     Route: 065

REACTIONS (9)
  - Immune reconstitution inflammatory syndrome [Recovering/Resolving]
  - Progressive multifocal leukoencephalopathy [Recovering/Resolving]
  - Polyomavirus test positive [Unknown]
  - Hemiparesis [Recovering/Resolving]
  - Dysarthria [Unknown]
  - Dysphagia [Unknown]
  - Polyomavirus test positive [Unknown]
  - Muscular weakness [Recovering/Resolving]
  - Bedridden [Recovering/Resolving]
